FAERS Safety Report 9197971 (Version 1)
Quarter: 2013Q1

REPORT INFORMATION
  Report Type: Spontaneous
  Country: US (occurrence: US)
  Receive Date: 20130328
  Receipt Date: 20130328
  Transmission Date: 20140127
  Serious: Yes (Life-Threatening)
  Sender: FDA-Public Use
  Company Number: CHPA2013US005406

PATIENT
  Age: 50 Year
  Sex: Female

DRUGS (2)
  1. EXCEDRIN MIGRAINE [Suspect]
     Indication: HEADACHE
     Dosage: UNK, UNK
  2. EXCEDRIN TENSION HEADACHE [Suspect]
     Dosage: 1 CAPLET, UNK
     Route: 048

REACTIONS (1)
  - Throat tightness [Recovered/Resolved]
